FAERS Safety Report 8286421-8 (Version None)
Quarter: 2012Q2

REPORT INFORMATION
  Report Type: 
  Country: None (occurrence: None)
  Receive Date: 20120411
  Receipt Date: 20120411
  Transmission Date: 20120825
  Serious: Yes (Hospitalization)
  Sender: FDA-Public Use
  Company Number: None

PATIENT
  Age: 58 Year
  Sex: Male
  Weight: 81.1939 kg

DRUGS (1)
  1. CYMBALTA [Suspect]
     Indication: MENTAL DISORDER
     Dosage: 20 MGS 1X
     Dates: start: 20120227

REACTIONS (5)
  - SWOLLEN TONGUE [None]
  - HEART RATE IRREGULAR [None]
  - OEDEMA MOUTH [None]
  - HEART RATE INCREASED [None]
  - PHARYNGEAL OEDEMA [None]
